FAERS Safety Report 25090636 (Version 1)
Quarter: 2025Q1

REPORT INFORMATION
  Report Type: Spontaneous
  Country: FR (occurrence: FR)
  Receive Date: 20250318
  Receipt Date: 20250318
  Transmission Date: 20250409
  Serious: Yes (Life-Threatening, Other)
  Sender: BAXTER
  Company Number: None

PATIENT
  Age: 84 Year
  Sex: Male
  Weight: 86 kg

DRUGS (12)
  1. CYCLOPHOSPHAMIDE [Suspect]
     Active Substance: CYCLOPHOSPHAMIDE
     Indication: Vasculitis
     Route: 042
     Dates: start: 20250214, end: 20250214
  2. CYCLOSPORINE [Suspect]
     Active Substance: CYCLOSPORINE
     Indication: Vasculitis
     Route: 042
     Dates: start: 20250218, end: 20250219
  3. PROPOFOL [Concomitant]
     Active Substance: PROPOFOL
     Route: 065
  4. SUFENTANIL [Concomitant]
     Active Substance: SUFENTANIL
     Route: 065
  5. NOREPINEPHRINE BITARTRATE [Concomitant]
     Active Substance: NOREPINEPHRINE BITARTRATE
     Route: 065
  6. PANTOPRAZOLE [Concomitant]
     Active Substance: PANTOPRAZOLE
     Route: 065
  7. PIPERACILLIN SODIUM [Concomitant]
     Active Substance: PIPERACILLIN SODIUM
     Route: 065
  8. TAZOBACTAM SODIUM [Concomitant]
     Active Substance: TAZOBACTAM SODIUM
     Route: 065
  9. LEUCOVORIN CALCIUM [Concomitant]
     Active Substance: LEUCOVORIN CALCIUM
     Route: 065
  10. LANDIOLOL HYDROCHLORIDE [Concomitant]
     Active Substance: LANDIOLOL HYDROCHLORIDE
     Route: 065
  11. INSULIN NOS [Concomitant]
     Active Substance: INSULIN NOS
     Route: 065
  12. METHYLPREDNISOLONE [Concomitant]
     Active Substance: METHYLPREDNISOLONE
     Route: 065

REACTIONS (1)
  - Hepatitis fulminant [Recovering/Resolving]

NARRATIVE: CASE EVENT DATE: 20250219
